FAERS Safety Report 10242098 (Version 1)
Quarter: 2014Q1

REPORT INFORMATION
  Report Type: Spontaneous
  Country: US (occurrence: None)
  Receive Date: 20140306
  Receipt Date: 20140306
  Transmission Date: 20141002
  Serious: Yes (Hospitalization)
  Sender: FDA-Public Use
  Company Number: 163-21880-13051902

PATIENT
  Age: 70 Year
  Sex: Female
  Weight: 64.4 kg

DRUGS (11)
  1. REVLIMID (LENALIDOMIDE) (25 MILLIGRAM, CAPSULES) [Suspect]
     Indication: PLASMA CELL MYELOMA
     Route: 048
     Dates: start: 200912, end: 2013
  2. SLOW IRON (IRON) (TABLETS) [Concomitant]
  3. FLONASE (FLUTICASONE PROPIONATE) (UNKNOWN) [Concomitant]
  4. AZOR (UNKNOWN) [Concomitant]
  5. ZETIA (EZETIMIBE) (UNKNOWN) [Concomitant]
  6. METOPROLOL SUCCINATE ER (METOPROLOL SUCCINATE) (UNKNOWN) [Concomitant]
  7. VITAMIN C (ASCORBIC ACID) (UNKNOWN) [Concomitant]
  8. PREVACID (LANSOPRAZOLE) (UNKNOWN) [Concomitant]
  9. VITAMIN D (ERGOCALCIFEROL) (UNKNOWN) [Concomitant]
  10. ASPIRIN-LOWDOSE (ACETYLSALICYLIC ACID) (UNKNOWN) [Concomitant]
  11. DEXAMETHASONE (DEXAMETHASONE) (UNKNOWN) [Concomitant]

REACTIONS (5)
  - Pneumonia [None]
  - Nervousness [None]
  - Bursitis [None]
  - Pain [None]
  - Tremor [None]
